FAERS Safety Report 19779298 (Version 3)
Quarter: 2022Q2

REPORT INFORMATION
  Report Type: Spontaneous
  Country: US (occurrence: US)
  Receive Date: 20210902
  Receipt Date: 20220608
  Transmission Date: 20220720
  Serious: No
  Sender: FDA-Public Use
  Company Number: US-PFIZER INC-2021664719

PATIENT
  Age: 50 Year
  Sex: Female

DRUGS (2)
  1. IBRANCE [Suspect]
     Active Substance: PALBOCICLIB
     Indication: Breast cancer female
     Dosage: 125 MG
  2. IBRANCE [Suspect]
     Active Substance: PALBOCICLIB
     Dosage: UNK
     Dates: start: 20201119, end: 20220603

REACTIONS (6)
  - Product dose omission issue [Unknown]
  - Fatigue [Recovered/Resolved]
  - Pain [Unknown]
  - Asthenia [Unknown]
  - Fatigue [Unknown]
  - Quality of life decreased [Unknown]
